FAERS Safety Report 21806681 (Version 2)
Quarter: 2023Q1

REPORT INFORMATION
  Report Type: Spontaneous
  Country: US (occurrence: US)
  Receive Date: 20230102
  Receipt Date: 20230222
  Transmission Date: 20230417
  Serious: No
  Sender: FDA-Public Use
  Company Number: US-BoehringerIngelheim-2023-BI-210642

PATIENT
  Age: 70 Year
  Sex: Female

DRUGS (1)
  1. SPIRIVA HANDIHALER [Suspect]
     Active Substance: TIOTROPIUM BROMIDE MONOHYDRATE
     Indication: Emphysema
     Route: 055
     Dates: start: 2017

REACTIONS (2)
  - Intentional product use issue [Unknown]
  - Incorrect route of product administration [Unknown]

NARRATIVE: CASE EVENT DATE: 20170101
